FAERS Safety Report 6263582-3 (Version None)
Quarter: 2009Q3

REPORT INFORMATION
  Report Type: 
  Country: None (occurrence: None)
  Receive Date: 20090710
  Receipt Date: 20090511
  Transmission Date: 20100115
  Serious: No
  Sender: FDA-Public Use
  Company Number: A0783538A

PATIENT
  Age: 50 Year
  Sex: Female

DRUGS (4)
  1. TYKERB [Suspect]
     Indication: BREAST CANCER
     Dosage: 1000MG PER DAY
     Route: 048
     Dates: start: 20090428
  2. POTASSIUM CHLORIDE [Concomitant]
  3. LASIX [Concomitant]
  4. IMODIUM [Concomitant]

REACTIONS (1)
  - DIARRHOEA [None]
